FAERS Safety Report 7138000-3 (Version None)
Quarter: 2010Q4

REPORT INFORMATION
  Report Type: 
  Country: None (occurrence: None)
  Receive Date: 20101103
  Receipt Date: 20101013
  Transmission Date: 20110411
  Serious: Yes (Death)
  Sender: FDA-Public Use
  Company Number: US-WYE-H18206210

PATIENT
  Age: 23 Year
  Sex: Male
  Weight: 70.37 kg

DRUGS (3)
  1. EFFEXOR XR [Suspect]
     Indication: DEPRESSION
     Dosage: LOWER DOSE WAS STARTED INCREASED ON AN UNKNOWN DATE TO A MAXIMUM DOSE OF 300 MG
     Dates: end: 20080101
  2. EFFEXOR XR [Suspect]
     Indication: SUICIDAL IDEATION
     Dosage: LOWER DOSE WAS STARTED INCREASED ON AN UNKNOWN DATE TO A MAXIMUM DOSE OF 300 MG
     Dates: end: 20080101
  3. XANAX [Suspect]
     Indication: INSOMNIA
     Dosage: 1 MG 1X PER 1 DAY
     Dates: start: 20040101

REACTIONS (4)
  - DEPRESSION [None]
  - INSOMNIA [None]
  - OVERDOSE [None]
  - SUICIDAL IDEATION [None]
